FAERS Safety Report 13621108 (Version 2)
Quarter: 2017Q3

REPORT INFORMATION
  Report Type: Report from Study
  Country: CO (occurrence: CO)
  Receive Date: 20170607
  Receipt Date: 20170816
  Transmission Date: 20171127
  Serious: Yes (Other)
  Sender: FDA-Public Use
  Company Number: CO-AMGEN-COLSL2017085579

PATIENT
  Age: 66 Year
  Sex: Female

DRUGS (1)
  1. VECTIBIX [Suspect]
     Active Substance: PANITUMUMAB
     Indication: COLORECTAL CANCER METASTATIC
     Dosage: 455 MG, Q2WK
     Route: 042
     Dates: start: 20151123

REACTIONS (1)
  - Disease progression [Recovering/Resolving]

NARRATIVE: CASE EVENT DATE: 20170410
